FAERS Safety Report 12776929 (Version 2)
Quarter: 2016Q4

REPORT INFORMATION
  Report Type: Report from Study
  Country: CA (occurrence: CA)
  Receive Date: 20160923
  Receipt Date: 20161103
  Transmission Date: 20170207
  Serious: Yes (Death)
  Sender: FDA-Public Use
  Company Number: CA-HLSUS-2016-CA-000471

PATIENT
  Age: 33 Year
  Sex: Male

DRUGS (1)
  1. CLOZARIL [Suspect]
     Active Substance: CLOZAPINE
     Indication: SCHIZOPHRENIA
     Dosage: TWICE A DAY
     Route: 048
     Dates: start: 20160419

REACTIONS (2)
  - Completed suicide [Fatal]
  - Drowning [Fatal]

NARRATIVE: CASE EVENT DATE: 20160920
